FAERS Safety Report 10404551 (Version 1)
Quarter: 2014Q2

REPORT INFORMATION
  Report Type: Spontaneous
  Country: US (occurrence: None)
  Receive Date: 20140514
  Receipt Date: 20140514
  Transmission Date: 20141212
  Serious: Yes (Other)
  Sender: FDA-Public Use
  Company Number: 088192

PATIENT
  Sex: Female

DRUGS (2)
  1. CIMZIA [Suspect]
     Indication: CROHN^S DISEASE
     Dosage: ()?(TO UNKNOWN)
  2. REMICADE [Concomitant]

REACTIONS (11)
  - Small intestinal resection [None]
  - Intestinal stenosis [None]
  - Hysterectomy [None]
  - Appendicectomy [None]
  - Gastrointestinal motility disorder [None]
  - Anaemia [None]
  - Nephrolithiasis [None]
  - Cholelithiasis [None]
  - Ulcer [None]
  - Swelling [None]
  - Diarrhoea [None]
